FAERS Safety Report 18054630 (Version 1)
Quarter: 2020Q3

REPORT INFORMATION
  Report Type: Spontaneous
  Country: US (occurrence: US)
  Receive Date: 20200722
  Receipt Date: 20200722
  Transmission Date: 20201103
  Serious: No
  Sender: FDA-Public Use
  Company Number: US-SA-2020SA187516

PATIENT

DRUGS (3)
  1. AUBAGIO [Suspect]
     Active Substance: TERIFLUNOMIDE
     Indication: MULTIPLE SCLEROSIS
     Dosage: 14 MG, QD
     Route: 048
     Dates: start: 20200612
  2. ADVIL [IBUPROFEN] [Concomitant]
     Active Substance: IBUPROFEN
     Indication: ARTHRALGIA
     Dosage: UNK, PRN
     Dates: start: 2020
  3. ADVIL [IBUPROFEN] [Concomitant]
     Active Substance: IBUPROFEN
     Indication: NEURALGIA

REACTIONS (4)
  - Lymphocyte count decreased [Unknown]
  - Arthralgia [Unknown]
  - Alopecia [Unknown]
  - Neuralgia [Unknown]

NARRATIVE: CASE EVENT DATE: 2020
